FAERS Safety Report 8602947-9 (Version None)
Quarter: 2012Q3

REPORT INFORMATION
  Report Type: 
  Country: None (occurrence: None)
  Receive Date: 20120817
  Receipt Date: 20120813
  Transmission Date: 20120928
  Serious: Yes (Life-Threatening, Other)
  Sender: FDA-Public Use
  Company Number: US-BRISTOL-MYERS SQUIBB COMPANY-16860116

PATIENT
  Age: 77 Year
  Sex: Male

DRUGS (17)
  1. MORPHINE [Concomitant]
     Dates: start: 20120408, end: 20120408
  2. ASPIRIN [Concomitant]
     Dates: start: 20110319
  3. TRIAMCINOLONE [Concomitant]
     Dosage: TRIAMCINOLONE CREATM 1%
     Dates: start: 20120123
  4. PLACEBO [Suspect]
     Indication: TYPE 2 DIABETES MELLITUS
     Dates: start: 20100608
  5. PRAVASTATIN SODIUM [Concomitant]
     Dosage: 08APR2012-08APR2012(40MG) 09APR2012-CONTING(80MG)
     Dates: start: 20120408
  6. HEPARIN [Concomitant]
     Dates: start: 20120408, end: 20120408
  7. GLUCOTROL XL [Suspect]
     Indication: TYPE 2 DIABETES MELLITUS
     Dosage: BEFORE RANDOMIZATION-15NOV2010(20MG) 16NOV2010-27JUN2011(30MG) 28JUN2011-CONTN(20MG)
  8. PLAVIX [Concomitant]
     Dates: start: 20120408
  9. LASIX [Concomitant]
     Dates: start: 20120408, end: 20120408
  10. NITROBID OINTMENT [Concomitant]
     Dates: start: 20120408, end: 20120408
  11. LANTUS [Suspect]
     Indication: TYPE 2 DIABETES MELLITUS
     Dosage: BEFORE RANDOMIZATION-15AUG2010(30IU) 16AUG2010-01NOV2011(25IU/UNITS) 02NOV2011-CONTING(30IU/UNITS)
  12. HUMALOG [Suspect]
     Indication: TYPE 2 DIABETES MELLITUS
     Dosage: HUMALOG SHORT ACTING INSULIN BEFORE RANDOMIZATION-23JAN2011(8IU) 24JAN2012-CONTING(6UNITS)
  13. INTEGRILIN [Concomitant]
     Dates: start: 20120408, end: 20120408
  14. SODIUM CHLORIDE [Concomitant]
     Dates: start: 20120408, end: 20120410
  15. SAXAGLIPTIN [Suspect]
     Indication: TYPE 2 DIABETES MELLITUS
     Dates: start: 20100608
  16. CARVEDILOL [Concomitant]
     Dates: start: 20120409
  17. CALCIUM ANTAGONIST [Concomitant]
     Dosage: DIHYDROPYRIDINES
     Dates: start: 20120221

REACTIONS (1)
  - HYPOGLYCAEMIA [None]
